FAERS Safety Report 10021743 (Version 3)
Quarter: 2014Q2

REPORT INFORMATION
  Report Type: Spontaneous
  Country: US (occurrence: None)
  Receive Date: 20140313
  Receipt Date: 20140408
  Transmission Date: 20141212
  Serious: Yes (Other)
  Sender: FDA-Public Use
  Company Number: ADR-2014-00396

PATIENT
  Age: 58 Year
  Sex: Male

DRUGS (3)
  1. LIORESAL [Suspect]
     Indication: MUSCLE SPASTICITY
     Dates: start: 2009
  2. NEURONTIN [Suspect]
  3. ALBUTEROL [Suspect]

REACTIONS (5)
  - Muscle spasticity [None]
  - Condition aggravated [None]
  - Urinary tract infection [None]
  - Ingrowing nail [None]
  - Device malfunction [None]
